FAERS Safety Report 10022555 (Version 1)
Quarter: 2014Q1

REPORT INFORMATION
  Report Type: Spontaneous
  Country: GB (occurrence: GB)
  Receive Date: 20140319
  Receipt Date: 20140319
  Transmission Date: 20141002
  Serious: Yes (Other)
  Sender: FDA-Public Use
  Company Number: PHHY2014GB029771

PATIENT
  Age: 69 Year
  Sex: Female
  Weight: 54 kg

DRUGS (4)
  1. CETIRIZINE [Suspect]
     Dates: start: 20140226
  2. DIPROBASE [Concomitant]
     Dosage: UNK
     Dates: start: 20140226
  3. PILOCARPINE HYDROCHLORIDE [Concomitant]
     Dates: start: 20131211
  4. TIMOPTOL [Concomitant]
     Dates: start: 20131211

REACTIONS (4)
  - Urinary incontinence [Recovered/Resolved]
  - Feeling hot [Unknown]
  - Hyperhidrosis [Unknown]
  - Dizziness [Unknown]
